FAERS Safety Report 6074721-1 (Version None)
Quarter: 2009Q1

REPORT INFORMATION
  Report Type: 
  Country: None (occurrence: None)
  Receive Date: 20090212
  Receipt Date: 20090205
  Transmission Date: 20090719
  Serious: Yes (Hospitalization)
  Sender: FDA-Public Use
  Company Number: US-JNJFOC-20090201909

PATIENT
  Sex: Male
  Weight: 68.04 kg

DRUGS (5)
  1. FENTANYL TRANSDERMAL SYSTEM [Suspect]
     Route: 062
  2. FENTANYL TRANSDERMAL SYSTEM [Suspect]
     Indication: PAIN
     Route: 062
  3. NEURONTIN [Concomitant]
     Indication: NEURALGIA
     Route: 048
  4. DITROPAN [Concomitant]
     Indication: BLADDER DISORDER
     Route: 048
  5. BACLOFEN [Concomitant]
     Indication: MUSCLE SPASMS
     Route: 048

REACTIONS (4)
  - DIZZINESS [None]
  - INADEQUATE ANALGESIA [None]
  - JOINT DISLOCATION [None]
  - SPINAL CORD OPERATION [None]
